FAERS Safety Report 10198319 (Version 1)
Quarter: 2014Q2

REPORT INFORMATION
  Report Type: Spontaneous
  Country: US (occurrence: US)
  Receive Date: 20140527
  Receipt Date: 20140527
  Transmission Date: 20141212
  Serious: No
  Sender: FDA-Public Use
  Company Number: US-NOVEN-13US007043

PATIENT
  Age: 5 Year
  Sex: Male
  Weight: 19.5 kg

DRUGS (6)
  1. DAYTRANA [Suspect]
     Indication: ATTENTION DEFICIT/HYPERACTIVITY DISORDER
     Dosage: 10 MG, UNK
     Route: 062
     Dates: start: 201305, end: 201306
  2. DAYTRANA [Suspect]
     Dosage: 20 MG, QD
     Route: 062
     Dates: start: 20130604
  3. DAYTRANA [Suspect]
     Dosage: 10 MG, QD, 2 X 10MG
     Route: 062
     Dates: start: 201305, end: 201305
  4. FOCALIN [Concomitant]
     Indication: ATTENTION DEFICIT/HYPERACTIVITY DISORDER
     Dosage: 20 MG, PRN
     Route: 048
  5. FOCALIN [Concomitant]
     Dosage: 5 MG PRN
     Route: 048
  6. FOCALIN [Concomitant]
     Dosage: 2.5 MG, EVENING
     Route: 048

REACTIONS (7)
  - Off label use [Not Recovered/Not Resolved]
  - Wrong technique in drug usage process [Recovered/Resolved]
  - Drug administration error [Recovered/Resolved]
  - Drug dose omission [Recovered/Resolved]
  - Drug prescribing error [Recovered/Resolved]
  - Product quality issue [Unknown]
  - No adverse event [None]
